FAERS Safety Report 4881043-0 (Version None)
Quarter: 2005Q4

REPORT INFORMATION
  Report Type: 
  Country: None (occurrence: None)
  Receive Date: 20051223
  Receipt Date: 20051025
  Transmission Date: 20060501
  Serious: No
  Sender: FDA-Public Use
  Company Number: 05P-163-0315100-00

PATIENT
  Age: 60 Year
  Sex: Male
  Weight: 83.9154 kg

DRUGS (13)
  1. HUMIRA [Suspect]
     Indication: RHEUMATOID ARTHRITIS
     Dosage: 40 MG, 1 IN 2 WK, SUBCUTANEOUS
     Route: 058
     Dates: start: 20051006
  2. PHENYTOIN SODIUM [Concomitant]
  3. MESALAMINE [Concomitant]
  4. LISINOPRIL [Concomitant]
  5. INDAPAMIDE [Concomitant]
  6. FLUOXETINE HYDROCHLORIDE [Concomitant]
  7. ACETYLSALICYLIC ACID SRT [Concomitant]
  8. SIMVASTATIN [Concomitant]
  9. FENOFIBRATE [Concomitant]
  10. HYDROCODONE BITARTRATE [Concomitant]
  11. FENTANYL [Concomitant]
  12. PREDNISONE [Concomitant]
  13. TEMAZEPAM [Concomitant]

REACTIONS (1)
  - EAR CONGESTION [None]
